FAERS Safety Report 12047898 (Version 2)
Quarter: 2016Q4

REPORT INFORMATION
  Report Type: Spontaneous
  Country: IT (occurrence: IT)
  Receive Date: 20160208
  Receipt Date: 20161021
  Transmission Date: 20170206
  Serious: Yes (Other)
  Sender: FDA-Public Use
  Company Number: IT-PFIZER INC-2016066686

PATIENT
  Age: 8 Year
  Sex: Female

DRUGS (2)
  1. METHYLPREDNISOLONE SODIUM SUCCINATE. [Suspect]
     Active Substance: METHYLPREDNISOLONE SODIUM SUCCINATE
     Indication: UVEITIS
     Dosage: 30 MG/KG, CYCLIC, 3 CONSECUTIVE
     Route: 042
  2. METHOTREXATE. [Concomitant]
     Active Substance: METHOTREXATE
     Dosage: 15 MG/M2, WEEKLY
     Route: 048

REACTIONS (4)
  - Drug dependence [Recovered/Resolved]
  - Intraocular pressure increased [Unknown]
  - Cushing^s syndrome [Unknown]
  - Drug ineffective [Unknown]
